FAERS Safety Report 6252754-X (Version None)
Quarter: 2009Q2

REPORT INFORMATION
  Report Type: 
  Country: None (occurrence: None)
  Receive Date: 20090629
  Receipt Date: 20090629
  Transmission Date: 20091009
  Serious: Yes (Other)
  Sender: FDA-Public Use
  Company Number: None

PATIENT
  Age: 29 Year
  Sex: Female
  Weight: 58.9676 kg

DRUGS (2)
  1. ZICAM COLD REMEDY NASAL 15ML [Suspect]
     Indication: NASOPHARYNGITIS
     Dosage: 1 SPRAY PER SIDE EVERY OTHER WEEK NASAL
     Route: 045
     Dates: start: 20071201, end: 20090616
  2. ZICAM COLD REMEDY SWABS 20 SWABS [Suspect]
     Dosage: SWAB PER SIDE COLD SEASON NASAL
     Route: 045

REACTIONS (1)
  - ANOSMIA [None]
